FAERS Safety Report 6904066-6 (Version None)
Quarter: 2010Q3

REPORT INFORMATION
  Report Type: 
  Country: None (occurrence: None)
  Receive Date: 20100804
  Receipt Date: 20090309
  Transmission Date: 20110219
  Serious: No
  Sender: FDA-Public Use
  Company Number: US-PFIZER INC-2009180508

PATIENT
  Sex: Male
  Weight: 72.574 kg

DRUGS (4)
  1. LYRICA [Suspect]
     Indication: DIABETIC NEUROPATHY
     Dates: start: 20070101
  2. NEURONTIN [Suspect]
     Indication: DIABETIC NEUROPATHY
  3. GLYBURIDE AND METFORMIN HYDROCHLORIDE [Concomitant]
     Indication: DIABETES MELLITUS
     Dosage: UNK
  4. DRUG, UNSPECIFIED [Concomitant]
     Dosage: UNK

REACTIONS (4)
  - DRUG INEFFECTIVE [None]
  - MUSCULOSKELETAL PAIN [None]
  - NEURALGIA [None]
  - WEIGHT INCREASED [None]
